FAERS Safety Report 24199872 (Version 1)
Quarter: 2024Q3

REPORT INFORMATION
  Report Type: Spontaneous
  Country: CN (occurrence: CN)
  Receive Date: 20240812
  Receipt Date: 20240812
  Transmission Date: 20241017
  Serious: Yes (Other)
  Sender: NOVARTIS
  Company Number: CN-002147023-NVSC2024CN162373

PATIENT
  Age: 32 Year
  Sex: Male

DRUGS (2)
  1. FINGOLIMOD [Suspect]
     Active Substance: FINGOLIMOD
     Indication: Encephalitis autoimmune
     Dosage: 0.5 MG, QD
     Route: 065
     Dates: start: 202009
  2. FINGOLIMOD [Suspect]
     Active Substance: FINGOLIMOD
     Indication: Multiple sclerosis

REACTIONS (5)
  - Lymphoproliferative disorder [Unknown]
  - Central nervous system lesion [Unknown]
  - Metabolic disorder [Unknown]
  - Pulmonary mass [Unknown]
  - Brain oedema [Unknown]
